FAERS Safety Report 7305604-4 (Version None)
Quarter: 2011Q1

REPORT INFORMATION
  Report Type: 
  Country: None (occurrence: None)
  Receive Date: 20110209
  Receipt Date: 20110131
  Transmission Date: 20110831
  Serious: Yes (Hospitalization)
  Sender: FDA-Public Use
  Company Number: 2010EN000356

PATIENT
  Age: 13 Year
  Sex: Female
  Weight: 44.6 kg

DRUGS (23)
  1. ONCASPAR [Suspect]
     Indication: ACUTE LYMPHOCYTIC LEUKAEMIA
     Dosage: 3375 IU;XI;IV
     Route: 042
     Dates: start: 20110103, end: 20110103
  2. METHOTREXATE [Suspect]
     Indication: ACUTE LYMPHOCYTIC LEUKAEMIA
     Dosage: 15 MG;QW;INTH, 60;QW;INTH
     Route: 037
     Dates: start: 20101220, end: 20110110
  3. METHOTREXATE [Suspect]
     Indication: ACUTE LYMPHOCYTIC LEUKAEMIA
     Dosage: 15 MG;QW;INTH, 60;QW;INTH
     Route: 037
     Dates: start: 20101119, end: 20101119
  4. CYCLOPHOSPHAMIDE [Suspect]
     Indication: ACUTE LEUKAEMIA
     Dosage: 1350 MG;X1;IV
     Route: 042
     Dates: start: 20101220, end: 20101220
  5. METOCLOPRAMIDE HCL [Concomitant]
  6. EZN-2285 (SC-PEG E. COLI L-ASPARAGINASE) [Suspect]
     Indication: ACUTE LYMPHOCYTIC LEUKAEMIA
     Dosage: 2877 IU;X1;IV
     Route: 042
     Dates: start: 20101115, end: 20101115
  7. COLACE [Concomitant]
  8. MORPHINE [Concomitant]
  9. MIRALAX [Concomitant]
  10. VINCRISTINE [Suspect]
     Indication: ACUTE LYMPHOCYTIC LEUKAEMIA
     Dosage: 6 MG;QW;IV, 4 MG:QW;IV
     Route: 042
     Dates: start: 20110103, end: 20110110
  11. VINCRISTINE [Suspect]
     Indication: ACUTE LYMPHOCYTIC LEUKAEMIA
     Dosage: 6 MG;QW;IV, 4 MG:QW;IV
     Route: 042
     Dates: start: 20101112, end: 20101126
  12. BACTRIM [Concomitant]
  13. CEFEPIME [Concomitant]
  14. DIPHENHYDRAMINE [Concomitant]
  15. LORAZEPAM [Concomitant]
  16. CYTARABINE [Concomitant]
  17. ALUMINUM HYDROXIDE GEL [Concomitant]
  18. DAUNORUBICIN [Suspect]
     Indication: ACUTE LYMPHOCYTIC LEUKAEMIA
     Dosage: 102 MG; QW; IV
     Route: 042
     Dates: start: 20101112, end: 20101126
  19. MERCAPTOPURINE [Suspect]
     Indication: ACUTE LYMPHOCYTIC LEUKAEMIA
     Dosage: 1150 MG; QD; PO
     Route: 048
     Dates: start: 20101220, end: 20110102
  20. CHLORHEXIDIEN [Concomitant]
  21. RANITIDINE [Concomitant]
  22. PREDNISONE [Concomitant]
  23. ZOFRAN [Concomitant]

REACTIONS (6)
  - HYPERTENSION [None]
  - BACK PAIN [None]
  - VOLUME BLOOD INCREASED [None]
  - PROCEDURAL PAIN [None]
  - HYPERBILIRUBINAEMIA [None]
  - PROTEINURIA [None]
